FAERS Safety Report 6663297-3 (Version None)
Quarter: 2010Q1

REPORT INFORMATION
  Report Type: 
  Country: None (occurrence: None)
  Receive Date: 20100331
  Receipt Date: 20100331
  Transmission Date: 20100710
  Serious: Yes (Hospitalization)
  Sender: FDA-Public Use
  Company Number: None

PATIENT
  Age: 60 Year
  Sex: Male
  Weight: 119.7 kg

DRUGS (1)
  1. IOPAMIDOL [Suspect]
     Indication: CATHETERISATION CARDIAC
     Dosage: 70 ML ONCE OTHER
     Route: 050
     Dates: start: 20100224, end: 20100224

REACTIONS (1)
  - ANAPHYLACTIC REACTION [None]
